FAERS Safety Report 15179910 (Version 1)
Quarter: 2018Q3

REPORT INFORMATION
  Report Type: Spontaneous
  Country: FR (occurrence: FR)
  Receive Date: 20180723
  Receipt Date: 20180723
  Transmission Date: 20181010
  Serious: Yes (Hospitalization)
  Sender: FDA-Public Use
  Company Number: FR-MERCK KGAA-2052563

PATIENT
  Age: 84 Year
  Sex: Male

DRUGS (3)
  1. NOVOTHYROX [Suspect]
     Active Substance: LEVOTHYROXINE SODIUM
     Indication: PRODUCT USED FOR UNKNOWN INDICATION
     Dates: start: 201805
  2. RAMIPRIL. [Concomitant]
     Active Substance: RAMIPRIL
  3. ELIQUIS [Concomitant]
     Active Substance: APIXABAN

REACTIONS (6)
  - Oedema [None]
  - Pruritus [None]
  - Cardiopulmonary failure [None]
  - Cardiac failure [None]
  - Dyspnoea [None]
  - Livedo reticularis [None]

NARRATIVE: CASE EVENT DATE: 2018
